FAERS Safety Report 6191992-1 (Version None)
Quarter: 2009Q2

REPORT INFORMATION
  Report Type: 
  Country: None (occurrence: None)
  Receive Date: 20090515
  Receipt Date: 20090506
  Transmission Date: 20091009
  Serious: Yes (Other)
  Sender: FDA-Public Use
  Company Number: B0537524A

PATIENT
  Sex: Male
  Weight: 78 kg

DRUGS (3)
  1. SERETIDE DISKUS [Suspect]
     Indication: ASTHMA
     Dosage: 1PUFF TWICE PER DAY
     Route: 055
     Dates: start: 20020101
  2. RHINOCORT [Concomitant]
     Route: 045
     Dates: start: 20040101, end: 20040101
  3. CORTICOIDS [Concomitant]
     Route: 048

REACTIONS (2)
  - BONE PAIN [None]
  - OSTEONECROSIS [None]
